FAERS Safety Report 15750457 (Version 1)
Quarter: 2018Q4

REPORT INFORMATION
  Report Type: Spontaneous
  Country: US (occurrence: US)
  Receive Date: 20181221
  Receipt Date: 20181221
  Transmission Date: 20190205
  Serious: Yes (Other)
  Sender: FDA-Public Use
  Company Number: US-BAYER-2018-241110

PATIENT
  Age: 77 Year
  Sex: Male

DRUGS (1)
  1. BETASERON [Suspect]
     Active Substance: INTERFERON BETA-1B
     Dosage: UNK
     Route: 058
     Dates: start: 201711

REACTIONS (3)
  - Multiple sclerosis [None]
  - Weight bearing difficulty [None]
  - Gait disturbance [None]

NARRATIVE: CASE EVENT DATE: 20181219
